FAERS Safety Report 20120098 (Version 1)
Quarter: 2021Q4

REPORT INFORMATION
  Report Type: Spontaneous
  Country: US (occurrence: US)
  Receive Date: 20211126
  Receipt Date: 20211126
  Transmission Date: 20220304
  Serious: Yes (Other)
  Sender: FDA-Public Use
  Company Number: US-REGENERON PHARMACEUTICALS, INC.-2021-106378

PATIENT

DRUGS (13)
  1. EYLEA [Suspect]
     Active Substance: AFLIBERCEPT
     Indication: Product used for unknown indication
     Dosage: FOR 3 DOSES, MONTHLY
  2. EYLEA [Suspect]
     Active Substance: AFLIBERCEPT
     Dosage: FOR 2 DOSES, Q4W
  3. EYLEA [Suspect]
     Active Substance: AFLIBERCEPT
     Dosage: UNK, Q8W
  4. EYLEA [Suspect]
     Active Substance: AFLIBERCEPT
     Dosage: Q12W
     Dates: start: 201401, end: 201902
  5. EYLEA [Suspect]
     Active Substance: AFLIBERCEPT
     Dosage: OD, Q4W, 3 DOSES
  6. EYLEA [Suspect]
     Active Substance: AFLIBERCEPT
     Dosage: Q12W OD
  7. ATENOLOL [Concomitant]
     Active Substance: ATENOLOL
     Indication: Product used for unknown indication
  8. LIPITOR [Concomitant]
     Active Substance: ATORVASTATIN CALCIUM
     Indication: Product used for unknown indication
  9. AMBIEN [Concomitant]
     Active Substance: ZOLPIDEM TARTRATE
     Indication: Product used for unknown indication
  10. AMITRIPTYLINE [Concomitant]
     Active Substance: AMITRIPTYLINE
     Indication: Product used for unknown indication
  11. ASPIRIN [Concomitant]
     Active Substance: ASPIRIN
     Indication: Product used for unknown indication
  12. ESTRACE [Concomitant]
     Active Substance: ESTRADIOL
     Indication: Product used for unknown indication
  13. FISH OIL [Concomitant]
     Active Substance: FISH OIL
     Indication: Product used for unknown indication

REACTIONS (5)
  - Eye haemorrhage [Recovered/Resolved]
  - Subretinal fluid [Unknown]
  - Detachment of macular retinal pigment epithelium [Unknown]
  - Visual impairment [Unknown]
  - Vision blurred [Unknown]
